FAERS Safety Report 7382371-X (Version None)
Quarter: 2011Q1

REPORT INFORMATION
  Report Type: 
  Country: None (occurrence: None)
  Receive Date: 20110329
  Receipt Date: 20110303
  Transmission Date: 20110831
  Serious: Yes (Death, Other)
  Sender: FDA-Public Use
  Company Number: US-BAYER-201012056NA

PATIENT
  Sex: Male
  Weight: 129.25 kg

DRUGS (14)
  1. AMICAR [Concomitant]
     Indication: SURGERY
     Dosage: UNK
     Dates: start: 20051103
  2. ZOCOR [Concomitant]
     Dosage: 20 MG, QD
  3. MAXZIDE [Concomitant]
     Dosage: 75/50, ONCE A DAY
  4. TRASYLOL [Suspect]
     Indication: PRODUCT USED FOR UNKNOWN INDICATION
     Route: 042
     Dates: start: 20051103
  5. MICARDIS [Concomitant]
     Dosage: 80 MG, QD
  6. ACETYLSALICYLIC ACID SRT [Concomitant]
     Dosage: 81 MG, QD
  7. PROSCAR [Concomitant]
     Dosage: 5 MG, QD
  8. UNCODEABLE ^UNCLASSIFIABLE^ [Concomitant]
     Dosage: 25/100 TWO/DAY FOR 7 DAYS
  9. CYMBALTA [Concomitant]
     Dosage: 60 MG, BID
  10. UNCODEABLE ^UNCLASSIFIABLE^ [Concomitant]
     Dosage: 3/DAY FOR 7 DAYS
  11. AMICAR [Concomitant]
     Dosage: UNK
     Dates: start: 20051104
  12. AMICAR [Concomitant]
     Dosage: UNK
     Dates: start: 20051105
  13. UNCODEABLE ^UNCLASSIFIABLE^ [Concomitant]
     Dosage: 4/DAY FOR 7 DAYS
  14. TOPROL-XL [Concomitant]
     Dosage: 25 MG, QD

REACTIONS (13)
  - FEAR [None]
  - ANHEDONIA [None]
  - RENAL IMPAIRMENT [None]
  - ANXIETY [None]
  - UNEVALUABLE EVENT [None]
  - INJURY [None]
  - EMOTIONAL DISTRESS [None]
  - DEATH [None]
  - MULTI-ORGAN FAILURE [None]
  - RENAL INJURY [None]
  - RENAL FAILURE [None]
  - PAIN [None]
  - STRESS [None]
